FAERS Safety Report 16683260 (Version 1)
Quarter: 2019Q3

REPORT INFORMATION
  Report Type: Spontaneous
  Country: US (occurrence: US)
  Receive Date: 20190807
  Receipt Date: 20190807
  Transmission Date: 20191004
  Serious: Yes (Hospitalization)
  Sender: FDA-Public Use
  Company Number: None

PATIENT
  Sex: Female

DRUGS (15)
  1. METOPROLOL TARTRATE. [Concomitant]
     Active Substance: METOPROLOL TARTRATE
  2. PRAVASTATIN. [Concomitant]
     Active Substance: PRAVASTATIN
  3. VITAMIN D [Concomitant]
     Active Substance: VITAMIN D NOS
  4. RAPAMUNE [Suspect]
     Active Substance: SIROLIMUS
     Indication: BONE MARROW TRANSPLANT
     Route: 048
     Dates: start: 20161215
  5. TERBINAFINE. [Concomitant]
     Active Substance: TERBINAFINE
  6. TRIAMCINOLON [Concomitant]
  7. ACYCLOVIR. [Concomitant]
     Active Substance: ACYCLOVIR
  8. METFORMIN [Concomitant]
     Active Substance: METFORMIN HYDROCHLORIDE
  9. POLYETH GLYC POW [Concomitant]
  10. AMITRIPTYLIN [Concomitant]
     Active Substance: AMITRIPTYLINE
  11. CITALOPRAM [Concomitant]
     Active Substance: CITALOPRAM HYDROBROMIDE
  12. A-HYDROCORT [Concomitant]
     Active Substance: HYDROCORTISONE SODIUM SUCCINATE
  13. LIDOCAINE. [Concomitant]
     Active Substance: LIDOCAINE
  14. MONTELUKAST [Concomitant]
     Active Substance: MONTELUKAST SODIUM
  15. NITROFURANTIN [Concomitant]
     Active Substance: NITROFURANTOIN

REACTIONS (2)
  - Surgery [None]
  - Therapy cessation [None]
